FAERS Safety Report 5121244-X (Version None)
Quarter: 2006Q4

REPORT INFORMATION
  Report Type: 
  Country: None (occurrence: None)
  Receive Date: 20061002
  Receipt Date: 20060918
  Transmission Date: 20070319
  Serious: Yes (Death, Other)
  Sender: FDA-Public Use
  Company Number: 2004083654

PATIENT
  Age: 61 Year
  Sex: Female
  Weight: 68.0396 kg

DRUGS (13)
  1. NEURONTIN [Suspect]
     Indication: BACK PAIN
     Dosage: (600 MG), ORAL
     Route: 048
     Dates: start: 19970101
  2. NEURONTIN [Suspect]
     Indication: OSTEOARTHRITIS
     Dosage: (600 MG), ORAL
     Route: 048
     Dates: start: 19970101
  3. ALCOHOL (ETHANOL) [Concomitant]
     Indication: ILL-DEFINED DISORDER
  4. DIAZEPAM [Suspect]
     Indication: ILL-DEFINED DISORDER
     Dosage: 15 MG (5 MG, 3 IN 1 D)
  5. OXYCODONE HCL [Suspect]
     Indication: ILL-DEFINED DISORDER
     Dosage: 7.5 MG
  6. PRANDIN [Concomitant]
  7. LIDODERM [Concomitant]
  8. VERAPAMIL [Concomitant]
  9. TRIAMTERENE AND HYDROCHLOROTHIAZIDE [Concomitant]
  10. CLONIDINE [Concomitant]
  11. AMBIEN [Concomitant]
  12. NEXIUM [Concomitant]
  13. OXYCONTIN [Concomitant]

REACTIONS (14)
  - ALCOHOLISM [None]
  - ANXIETY [None]
  - ARTERIOSCLEROSIS CORONARY ARTERY [None]
  - COMPLETED SUICIDE [None]
  - CORONARY ARTERY STENOSIS [None]
  - DEPRESSION [None]
  - DRUG ABUSER [None]
  - DRUG TOXICITY [None]
  - GAIT DISTURBANCE [None]
  - INJURY [None]
  - MULTIPLE DRUG OVERDOSE INTENTIONAL [None]
  - NERVOUS SYSTEM DISORDER [None]
  - PAIN [None]
  - SKIN ODOUR ABNORMAL [None]
